FAERS Safety Report 4299225-8 (Version None)
Quarter: 2004Q1

REPORT INFORMATION
  Report Type: 
  Country: None (occurrence: None)
  Receive Date: 20040217
  Receipt Date: 20040204
  Transmission Date: 20041129
  Serious: Yes (Hospitalization)
  Sender: FDA-Public Use
  Company Number: DE-JNJFOC-200311-2698

PATIENT
  Age: 70 Year
  Sex: Female
  Weight: 73 kg

DRUGS (5)
  1. REMICADE [Suspect]
     Indication: RHEUMATOID ARTHRITIS
     Dosage: 3 MG/KG, 1 IN 8 WEEK, INTRAVENOUS
     Route: 042
     Dates: start: 20020808
  2. PREDNISOLONE [Concomitant]
  3. VIOXX [Concomitant]
  4. METHOTREXATE [Concomitant]
  5. AZUMETOP (METOPROLOL TARTRATE) [Concomitant]

REACTIONS (9)
  - AORTIC VALVE DISEASE [None]
  - CARDIAC MURMUR [None]
  - CARDIAC VALVE VEGETATION [None]
  - ENDOCARDITIS [None]
  - MUSCULOSKELETAL STIFFNESS [None]
  - OPEN WOUND [None]
  - PLATELET COUNT DECREASED [None]
  - PNEUMONIA [None]
  - UROSEPSIS [None]
